FAERS Safety Report 15924697 (Version 1)
Quarter: 2019Q1

REPORT INFORMATION
  Report Type: Report from Study
  Country: GB (occurrence: GB)
  Receive Date: 20190206
  Receipt Date: 20190206
  Transmission Date: 20190417
  Serious: Yes (Hospitalization)
  Sender: FDA-Public Use
  Company Number: PHHY2019GB024554

PATIENT
  Sex: Female

DRUGS (1)
  1. OMNITROPE [Suspect]
     Active Substance: SOMATROPIN
     Indication: GROWTH HORMONE DEFICIENCY
     Dosage: 1.8 MG, QD, PRE FILLED PEN
     Route: 058
     Dates: start: 20171103

REACTIONS (3)
  - Internal haemorrhage [Unknown]
  - Haematemesis [Unknown]
  - Ulcer [Unknown]
